FAERS Safety Report 6370758-3 (Version None)
Quarter: 2009Q3

REPORT INFORMATION
  Report Type: 
  Country: None (occurrence: None)
  Receive Date: 20090923
  Receipt Date: 20081208
  Transmission Date: 20100115
  Serious: Yes (Other)
  Sender: FDA-Public Use
  Company Number: US-ASTRAZENECA-2006UW25448

PATIENT
  Age: 591 Month
  Sex: Female

DRUGS (3)
  1. SEROQUEL [Suspect]
     Indication: ANXIETY
     Route: 048
     Dates: start: 20050101
  2. SEROQUEL [Suspect]
     Indication: DEPRESSION
     Route: 048
     Dates: start: 20050101
  3. ZYPREXA [Concomitant]
     Dates: start: 20050501, end: 20051101

REACTIONS (2)
  - DIABETES MELLITUS [None]
  - PANCREATITIS [None]
